FAERS Safety Report 24742145 (Version 2)
Quarter: 2025Q3

REPORT INFORMATION
  Report Type: Spontaneous
  Country: CN (occurrence: CN)
  Receive Date: 20241217
  Receipt Date: 20250809
  Transmission Date: 20251020
  Serious: Yes (Life-Threatening, Hospitalization, Other)
  Sender: ALEXION PHARMACEUTICALS
  Company Number: CN-ASTRAZENECA-202412CHN011563CN

PATIENT
  Age: 44 Year
  Sex: Female
  Weight: 45 kg

DRUGS (10)
  1. BRILINTA [Suspect]
     Active Substance: TICAGRELOR
     Indication: Anticoagulant therapy
     Dosage: 90 MILLIGRAM, BID
     Dates: start: 20241121, end: 20241203
  2. TICAGRELOR [Suspect]
     Active Substance: TICAGRELOR
     Dosage: 90 MILLIGRAM, BID
     Dates: start: 20241202, end: 20241203
  3. ASPIRIN [Suspect]
     Active Substance: ASPIRIN
     Indication: Anticoagulant therapy
     Dosage: 0.1 GRAM, QD
     Dates: start: 20241121, end: 20241203
  4. BISOPROLOL [Concomitant]
     Active Substance: BISOPROLOL
     Indication: Myocardial ischaemia
     Dosage: 5 MILLIGRAM, QD
     Dates: start: 20241202, end: 20241203
  5. ROSUVASTATIN CALCIUM [Concomitant]
     Active Substance: ROSUVASTATIN CALCIUM
     Indication: Plaque shift
     Dosage: 20 MILLIGRAM, QD
     Dates: start: 20241202, end: 20241203
  6. IRON [Concomitant]
     Active Substance: IRON
     Indication: Anaemia
     Dosage: 0.3 GRAM, QD
     Dates: start: 20241202, end: 20241203
  7. IVABRADINE HYDROCHLORIDE [Concomitant]
     Active Substance: IVABRADINE HYDROCHLORIDE
     Indication: Heart rate
     Dosage: 5 MILLIGRAM, BID
     Dates: start: 20241202, end: 20241203
  8. SODIUM BICARBONATE [Concomitant]
     Active Substance: SODIUM BICARBONATE
     Indication: Urine analysis
     Dosage: 0.5 GRAM, TID
     Dates: start: 20241202, end: 20241203
  9. Actilife Vitamin C Acerola [Concomitant]
     Indication: Blood iron
     Dosage: 0.1 GRAM, TID
     Dates: start: 20241202, end: 20241203
  10. SPIRONOLACTONE [Concomitant]
     Active Substance: SPIRONOLACTONE
     Dosage: 20 MILLIGRAM, BID
     Dates: start: 20241202, end: 20241203

REACTIONS (3)
  - Lower gastrointestinal haemorrhage [Recovering/Resolving]
  - Melaena [Recovering/Resolving]
  - Blood pressure decreased [Unknown]

NARRATIVE: CASE EVENT DATE: 20241202
